FAERS Safety Report 20450717 (Version 1)
Quarter: 2022Q1

REPORT INFORMATION
  Report Type: Report from Study
  Country: IT (occurrence: IT)
  Receive Date: 20220209
  Receipt Date: 20220209
  Transmission Date: 20220423
  Serious: Yes (Hospitalization)
  Sender: FDA-Public Use
  Company Number: None

PATIENT
  Age: 65 Year
  Sex: Female

DRUGS (3)
  1. MIRTAZAPINE [Suspect]
     Active Substance: MIRTAZAPINE
     Indication: Drug abuse
     Dosage: 15 DOSAGE FORM TOTAL
     Dates: start: 20211213, end: 20211213
  2. LYRICA [Suspect]
     Active Substance: PREGABALIN
     Indication: Drug abuse
     Dosage: 4 DOSAGE FORM TOTAL
     Dates: start: 20211213, end: 20211213
  3. ACETAMINOPHEN\OXYCODONE HYDROCHLORIDE [Suspect]
     Active Substance: ACETAMINOPHEN\OXYCODONE HYDROCHLORIDE
     Indication: Drug abuse
     Dosage: UNK
     Dates: start: 20211213, end: 20211213

REACTIONS (3)
  - Sopor [Not Recovered/Not Resolved]
  - Speech disorder [Not Recovered/Not Resolved]
  - Drug abuse [Not Recovered/Not Resolved]

NARRATIVE: CASE EVENT DATE: 20211213
